FAERS Safety Report 6263300-9 (Version None)
Quarter: 2009Q3

REPORT INFORMATION
  Report Type: 
  Country: None (occurrence: None)
  Receive Date: 20090710
  Receipt Date: 20090323
  Transmission Date: 20100115
  Serious: Yes (Other)
  Sender: FDA-Public Use
  Company Number: A0774813A

PATIENT
  Age: 64 Year
  Sex: Male

DRUGS (6)
  1. REQUIP XL [Suspect]
     Indication: PARKINSON'S DISEASE
     Route: 048
     Dates: start: 20090303
  2. ARTANE [Concomitant]
  3. SINEMET [Concomitant]
  4. STALEVO 100 [Concomitant]
  5. LYRICA [Concomitant]
  6. ULTRACET [Concomitant]

REACTIONS (2)
  - CONFUSIONAL STATE [None]
  - HALLUCINATION [None]
